FAERS Safety Report 8120554-1 (Version None)
Quarter: 2012Q1

REPORT INFORMATION
  Report Type: 
  Country: None (occurrence: None)
  Receive Date: 20120207
  Receipt Date: 20120130
  Transmission Date: 20120608
  Serious: Yes (Other)
  Sender: FDA-Public Use
  Company Number: AU-JNJFOC-20120113462

PATIENT
  Sex: Male

DRUGS (9)
  1. DILANTIN [Concomitant]
  2. STELARA [Suspect]
     Indication: PRODUCT USED FOR UNKNOWN INDICATION
     Route: 058
     Dates: start: 20100918
  3. STELARA [Suspect]
     Route: 058
     Dates: start: 20110305
  4. STELARA [Suspect]
     Route: 058
     Dates: start: 20110820
  5. STELARA [Suspect]
     Route: 058
     Dates: start: 20111112
  6. TEGRETOL [Concomitant]
  7. STELARA [Suspect]
     Route: 058
     Dates: start: 20100820
  8. STELARA [Suspect]
     Route: 058
     Dates: start: 20101211
  9. STELARA [Suspect]
     Route: 058
     Dates: start: 20110528

REACTIONS (1)
  - INTESTINAL POLYPECTOMY [None]
